FAERS Safety Report 12983769 (Version 1)
Quarter: 2016Q4

REPORT INFORMATION
  Report Type: Report from Study
  Country: IT (occurrence: IT)
  Receive Date: 20161129
  Receipt Date: 20161129
  Transmission Date: 20170207
  Serious: Yes (Life-Threatening, Hospitalization)
  Sender: FDA-Public Use
  Company Number: IT-CELGENEUS-ITA-2016117410

PATIENT
  Age: 56 Year
  Sex: Male
  Weight: 111 kg

DRUGS (19)
  1. LANSOPRAZOLE. [Concomitant]
     Active Substance: LANSOPRAZOLE
     Indication: GASTRITIS PROPHYLAXIS
     Dosage: 30 MG
     Route: 048
     Dates: start: 201401
  2. ZOMETA [Concomitant]
     Active Substance: ZOLEDRONIC ACID
     Indication: OSTEOPOROSIS PROPHYLAXIS
     Dosage: 4 MG
     Route: 041
     Dates: start: 20150608
  3. RANITIDINE. [Concomitant]
     Active Substance: RANITIDINE
     Indication: GASTRITIS PROPHYLAXIS
     Dosage: 300 MG
     Route: 041
     Dates: start: 20161107, end: 20161116
  4. XERISTAR [Concomitant]
     Active Substance: DULOXETINE HYDROCHLORIDE
     Indication: DEPRESSION
     Dosage: 60 MG
     Route: 048
     Dates: start: 2012
  5. CC-4047 [Suspect]
     Active Substance: POMALIDOMIDE
     Indication: PLASMA CELL MYELOMA
     Dosage: 4 MG
     Route: 048
     Dates: start: 20140901, end: 20140928
  6. TRIMETOPRIM/SULFAMETOXAZOL [Concomitant]
     Indication: INFECTION PROPHYLAXIS
     Dosage: 120 MG
     Route: 048
     Dates: start: 20160302
  7. CC-4047 [Suspect]
     Active Substance: POMALIDOMIDE
     Dosage: 4 MG
     Route: 048
     Dates: start: 20160923, end: 20161017
  8. CARDIOASA [Concomitant]
     Indication: THROMBOSIS PROPHYLAXIS
     Dosage: 100 MG
     Route: 048
     Dates: start: 20140901
  9. MS CONTIN [Concomitant]
     Active Substance: MORPHINE SULFATE
     Dosage: 10 MG
     Route: 048
     Dates: start: 20160907
  10. ONILAQ [Concomitant]
     Indication: NAIL INFECTION
     Dosage: 1
     Route: 061
     Dates: start: 20160704
  11. DEPALGOS [Concomitant]
     Active Substance: ACETAMINOPHEN\OXYCODONE HYDROCHLORIDE
     Indication: BONE PAIN
     Dosage: 10+325 MG
     Route: 048
     Dates: start: 20150105
  12. EFFENTORA [Concomitant]
     Active Substance: FENTANYL CITRATE
     Indication: BONE PAIN
     Dosage: 400 MCG
     Route: 060
     Dates: start: 20150105
  13. RANITIDINE. [Concomitant]
     Active Substance: RANITIDINE
     Dosage: 300 MG
     Route: 048
     Dates: start: 20161117, end: 20161121
  14. MS CONTIN [Concomitant]
     Active Substance: MORPHINE SULFATE
     Dosage: 20 MG
     Route: 048
     Dates: start: 20150907
  15. DEXAMETHASONE. [Suspect]
     Active Substance: DEXAMETHASONE
     Indication: PLASMA CELL MYELOMA
     Dosage: 20 MG
     Route: 048
     Dates: start: 20140901, end: 20140928
  16. DEXAMETHASONE. [Suspect]
     Active Substance: DEXAMETHASONE
     Dosage: 10 MG
     Route: 048
     Dates: start: 20160923, end: 20161017
  17. LYRICA [Concomitant]
     Active Substance: PREGABALIN
     Indication: PAIN
     Dosage: 225 MG
     Route: 048
     Dates: start: 2012
  18. MS CONTIN [Concomitant]
     Active Substance: MORPHINE SULFATE
     Indication: BONE PAIN
     Dosage: 40 MG
     Route: 048
     Dates: start: 20150105
  19. DIBASE [Concomitant]
     Active Substance: CHOLECALCIFEROL
     Indication: OSTEOPOROSIS PROPHYLAXIS
     Dosage: 40 DROPS
     Route: 048
     Dates: start: 20150414

REACTIONS (1)
  - Cholecystitis acute [Recovered/Resolved]

NARRATIVE: CASE EVENT DATE: 20161017
